FAERS Safety Report 15202933 (Version 3)
Quarter: 2019Q1

REPORT INFORMATION
  Report Type: Spontaneous
  Country: US (occurrence: US)
  Receive Date: 20180726
  Receipt Date: 20190102
  Transmission Date: 20190417
  Serious: Yes (Hospitalization, Other)
  Sender: FDA-Public Use
  Company Number: US-OTSUKA-2018_017052

PATIENT
  Sex: Female

DRUGS (12)
  1. ABILIFY [Suspect]
     Active Substance: ARIPIPRAZOLE
     Indication: BIPOLAR DISORDER
     Dosage: 5-30 MG, QD
     Route: 065
     Dates: start: 201401, end: 201703
  2. TRAZODONE [Concomitant]
     Active Substance: TRAZODONE HYDROCHLORIDE
     Indication: SLEEP DISORDER
     Dosage: 50 MG, UNK
     Route: 048
     Dates: start: 20150522
  3. LEVOTHYROXINE SODIUM. [Concomitant]
     Active Substance: LEVOTHYROXINE SODIUM
     Indication: HYPOTHYROIDISM
     Dosage: 75 MG, QD
     Route: 048
     Dates: start: 20151001
  4. ABILIFY [Suspect]
     Active Substance: ARIPIPRAZOLE
     Indication: MAJOR DEPRESSION
  5. SUBOXONE [Concomitant]
     Active Substance: BUPRENORPHINE HYDROCHLORIDE\NALOXONE HYDROCHLORIDE
     Indication: DRUG DEPENDENCE
     Dosage: 8/2 MG (BUPRENORPHINE HYDROCHLORIDE: 8 MG, NALOXONE HYDROCHLORIDE: 2 MG)
     Route: 060
     Dates: start: 20150522
  6. BUSPIRONE [Concomitant]
     Active Substance: BUSPIRONE HYDROCHLORIDE
     Indication: ANXIETY
     Dosage: 15 MG, BID
     Route: 048
     Dates: start: 20150522
  7. ABILIFY [Suspect]
     Active Substance: ARIPIPRAZOLE
     Indication: ANXIETY
  8. ABILIFY [Suspect]
     Active Substance: ARIPIPRAZOLE
     Indication: POST-TRAUMATIC STRESS DISORDER
  9. ABILIFY [Suspect]
     Active Substance: ARIPIPRAZOLE
     Indication: OBSESSIVE-COMPULSIVE DISORDER
  10. LAMOTRIGINE. [Concomitant]
     Active Substance: LAMOTRIGINE
     Indication: BIPOLAR DISORDER
     Dosage: 200 MG, QD
     Route: 048
     Dates: start: 20150903
  11. ABILIFY [Suspect]
     Active Substance: ARIPIPRAZOLE
     Indication: PERSONALITY DISORDER
  12. LITHIUM CARBONATE. [Concomitant]
     Active Substance: LITHIUM CARBONATE
     Indication: BIPOLAR DISORDER
     Dosage: 300 MG, TID (WITH MEAL)
     Route: 048
     Dates: start: 20150710

REACTIONS (26)
  - Mental disorder [Unknown]
  - Sexually transmitted disease [Unknown]
  - Shoplifting [Not Recovered/Not Resolved]
  - Compulsive sexual behaviour [Not Recovered/Not Resolved]
  - Compulsive shopping [Not Recovered/Not Resolved]
  - Product use in unapproved indication [Unknown]
  - Sexual dysfunction [Not Recovered/Not Resolved]
  - Gambling disorder [Recovered/Resolved]
  - Weight increased [Unknown]
  - Obsessive-compulsive disorder [Not Recovered/Not Resolved]
  - Eating disorder [Not Recovered/Not Resolved]
  - Blood thyroid stimulating hormone increased [Unknown]
  - Hepatic enzyme increased [Unknown]
  - Trichotillomania [Not Recovered/Not Resolved]
  - Drug dependence [Unknown]
  - Obsessive-compulsive disorder [Not Recovered/Not Resolved]
  - Loss of employment [Unknown]
  - Suicidal ideation [Not Recovered/Not Resolved]
  - Compulsive hoarding [Not Recovered/Not Resolved]
  - Theft [Not Recovered/Not Resolved]
  - Psychotic disorder [Unknown]
  - Economic problem [Unknown]
  - Antipsychotic drug level [Unknown]
  - Suicide attempt [Not Recovered/Not Resolved]
  - Hypersexuality [Unknown]
  - Dermatillomania [Not Recovered/Not Resolved]

NARRATIVE: CASE EVENT DATE: 201408
